FAERS Safety Report 24238926 (Version 2)
Quarter: 2025Q1

REPORT INFORMATION
  Report Type: Spontaneous
  Country: US (occurrence: US)
  Receive Date: 20240822
  Receipt Date: 20250207
  Transmission Date: 20250409
  Serious: No
  Sender: BAYER HEALTHCARE PHARMACEUTICALS INC.
  Company Number: US-BAYER-2024A116206

PATIENT
  Age: 13 Year
  Sex: Male

DRUGS (3)
  1. KOVALTRY [Suspect]
     Active Substance: ANTIHEMOPHILIC FACTOR, HUMAN RECOMBINANT
     Dosage: INFUSE 800 UNITS (+/-10%) EVERY OTHER DAY
     Route: 042
  2. KOVALTRY [Suspect]
     Active Substance: ANTIHEMOPHILIC FACTOR, HUMAN RECOMBINANT
  3. KOVALTRY [Suspect]
     Active Substance: ANTIHEMOPHILIC FACTOR, HUMAN RECOMBINANT
     Dosage: UNK, TIW

REACTIONS (2)
  - Product dose omission issue [None]
  - Product dose omission issue [None]

NARRATIVE: CASE EVENT DATE: 20240812
